FAERS Safety Report 17168349 (Version 1)
Quarter: 2019Q4

REPORT INFORMATION
  Report Type: Spontaneous
  Country: IT (occurrence: IT)
  Receive Date: 20191218
  Receipt Date: 20191218
  Transmission Date: 20200122
  Serious: Yes (Other)
  Sender: FDA-Public Use
  Company Number: IT-GLAXOSMITHKLINE-IT2019226835

PATIENT
  Age: 1 Year
  Sex: Male
  Weight: 11 kg

DRUGS (1)
  1. SALBUTAMOL [Suspect]
     Active Substance: ALBUTEROL
     Indication: DYSPNOEA
     Dosage: UNK
     Route: 065
     Dates: start: 20191127, end: 20191128

REACTIONS (4)
  - Agitation [Recovering/Resolving]
  - Dyspnoea [Recovering/Resolving]
  - Crying [Recovering/Resolving]
  - Drug ineffective [Recovering/Resolving]

NARRATIVE: CASE EVENT DATE: 20191127
